FAERS Safety Report 6078405 (Version 9)
Quarter: 2016Q1

REPORT INFORMATION
  Report Type: Spontaneous
  Country: DE (occurrence: DE)
  Receive Date: 20060707
  Receipt Date: 20160114
  Transmission Date: 20160526
  Serious: Yes (Hospitalization, Other)
  Sender: FDA-Public Use
  Company Number: DE-BRISTOL-MYERS SQUIBB COMPANY-13426846

PATIENT
  Age: 20 Year
  Sex: Female
  Weight: 54 kg

DRUGS (7)
  1. ABILIFY [Suspect]
     Active Substance: ARIPIPRAZOLE
     Indication: SCHIZOPHRENIA
     Dosage: 30 MG, QD
     Route: 048
     Dates: start: 20051229
  2. JODID [Concomitant]
     Active Substance: IODINE
     Indication: PRODUCT USED FOR UNKNOWN INDICATION
     Dosage: 100 MG, UNK
     Route: 065
  3. FOLCUR [Concomitant]
     Indication: PRODUCT USED FOR UNKNOWN INDICATION
     Dosage: 5 MG, UNK
     Route: 065
  4. DIPIPERON [Suspect]
     Active Substance: PIPAMPERONE
     Indication: RESTLESSNESS
     Dosage: 120 MG, QD
     Route: 048
     Dates: end: 20060308
  5. DIPIPERON [Suspect]
     Active Substance: PIPAMPERONE
     Indication: SLEEP DISORDER
  6. HALDOL [Suspect]
     Active Substance: HALOPERIDOL
     Indication: PRODUCT USED FOR UNKNOWN INDICATION
     Dosage: 2 MG, BID
     Route: 065
     Dates: start: 200603, end: 2006
  7. ZOLOFT [Suspect]
     Active Substance: SERTRALINE HYDROCHLORIDE
     Indication: DEPRESSION
     Dosage: 50 MG, QD
     Route: 048
     Dates: end: 20060308

REACTIONS (6)
  - Electroencephalogram abnormal [Unknown]
  - Alpha 1 foetoprotein amniotic fluid increased [Unknown]
  - Pregnancy [Recovered/Resolved]
  - Caesarean section [Unknown]
  - Hallucination, auditory [Unknown]
  - Hallucination, visual [Unknown]

NARRATIVE: CASE EVENT DATE: 200602
